FAERS Safety Report 9937155 (Version 1)
Quarter: 2014Q1

REPORT INFORMATION
  Report Type: Spontaneous
  Country: DE (occurrence: DE)
  Receive Date: 20140301
  Receipt Date: 20140301
  Transmission Date: 20141002
  Serious: Yes (Life-Threatening, Hospitalization, Other)
  Sender: FDA-Public Use
  Company Number: DE-ASTRAZENECA-2014SE13510

PATIENT
  Age: 54 Year
  Sex: Female
  Weight: 90 kg

DRUGS (3)
  1. CAPRELSA [Suspect]
     Indication: THYROID CANCER
     Route: 048
  2. DOXYCYCLIN [Suspect]
     Indication: ATYPICAL PNEUMONIA
     Route: 065
  3. CEFUROXIM [Suspect]
     Indication: ATYPICAL PNEUMONIA
     Dosage: 500, 2 DF, DAILY
     Route: 065

REACTIONS (3)
  - Renal failure acute [Recovered/Resolved]
  - Atypical pneumonia [Recovered/Resolved]
  - Pancreatitis [Recovering/Resolving]
